FAERS Safety Report 15448370 (Version 2)
Quarter: 2018Q4

REPORT INFORMATION
  Report Type: Spontaneous
  Country: US (occurrence: US)
  Receive Date: 20180929
  Receipt Date: 20181021
  Transmission Date: 20190204
  Serious: No
  Sender: FDA-Public Use
  Company Number: US-JNJFOC-20180917091

PATIENT
  Age: 66 Year
  Sex: Female
  Weight: 53 kg

DRUGS (1)
  1. IMBRUVICA [Suspect]
     Active Substance: IBRUTINIB
     Indication: CHRONIC LYMPHOCYTIC LEUKAEMIA
     Dosage: 420 MG, QD
     Route: 048
     Dates: start: 20180619

REACTIONS (1)
  - Sleep disorder [Unknown]

NARRATIVE: CASE EVENT DATE: 20180814
